FAERS Safety Report 4408749-1 (Version None)
Quarter: 2004Q3

REPORT INFORMATION
  Report Type: 
  Country: None (occurrence: None)
  Receive Date: 20040727
  Receipt Date: 20040720
  Transmission Date: 20050211
  Serious: Yes (Hospitalization, Other)
  Sender: FDA-Public Use
  Company Number: US-BRISTOL-MYERS SQUIBB COMPANY-12646733

PATIENT
  Age: 28 Year
  Sex: Male

DRUGS (3)
  1. TEQUIN [Suspect]
     Indication: SINUSITIS
  2. KEFZOL [Suspect]
     Indication: SINUSITIS
     Route: 030
  3. CIPRO [Suspect]
     Indication: SINUSITIS
     Route: 030

REACTIONS (6)
  - DERMATOMYOSITIS [None]
  - ERYTHEMA [None]
  - INJECTION SITE PAIN [None]
  - LACRIMATION INCREASED [None]
  - MEDICATION ERROR [None]
  - RHABDOMYOLYSIS [None]
